FAERS Safety Report 17854083 (Version 1)
Quarter: 2020Q2

REPORT INFORMATION
  Report Type: Report from Study
  Country: CA (occurrence: CA)
  Receive Date: 20200603
  Receipt Date: 20200603
  Transmission Date: 20200714
  Serious: Yes (Other)
  Sender: FDA-Public Use
  Company Number: PHHY2013CA058531

PATIENT
  Age: 45 Year
  Sex: Female
  Weight: 88.44 kg

DRUGS (2)
  1. EXTAVIA [Suspect]
     Active Substance: INTERFERON BETA-1B
     Indication: MULTIPLE SCLEROSIS
     Dosage: 8 MIU, QOD (TITRATION SCHEDULE: 2MIUX3 DOSES } 4MIUX3 DOSES } 6MIUX3 DOSES } THEN 8MIU QOD)
     Route: 058
     Dates: start: 20120715
  2. EXTAVIA [Suspect]
     Active Substance: INTERFERON BETA-1B
     Indication: RELAPSING-REMITTING MULTIPLE SCLEROSIS

REACTIONS (3)
  - Speech disorder [Unknown]
  - Cerebral atrophy [Unknown]
  - Migraine [Unknown]

NARRATIVE: CASE EVENT DATE: 20151222
